FAERS Safety Report 7925118 (Version 4)
Quarter: 2014Q2

REPORT INFORMATION
  Report Type: Spontaneous
  Country: US (occurrence: US)
  Receive Date: 20110502
  Receipt Date: 20140423
  Transmission Date: 20141212
  Serious: Yes (Other)
  Sender: FDA-Public Use
  Company Number: US-ASTRAZENECA-2010SE11334

PATIENT
  Age: 57 Year
  Sex: Female
  Weight: 64 kg

DRUGS (21)
  1. NEXIUM [Suspect]
     Indication: GASTROOESOPHAGEAL REFLUX DISEASE
     Route: 048
     Dates: start: 1999
  2. NEXIUM [Suspect]
     Indication: GASTROOESOPHAGEAL REFLUX DISEASE
     Route: 048
     Dates: start: 1999
  3. NEXIUM [Suspect]
     Indication: EROSIVE OESOPHAGITIS
     Route: 048
     Dates: start: 1999
  4. NEXIUM [Suspect]
     Indication: GASTROOESOPHAGEAL REFLUX DISEASE
     Route: 048
     Dates: start: 2001
  5. NEXIUM [Suspect]
     Indication: GASTROOESOPHAGEAL REFLUX DISEASE
     Route: 048
     Dates: start: 2001
  6. NEXIUM [Suspect]
     Indication: EROSIVE OESOPHAGITIS
     Route: 048
     Dates: start: 2001
  7. NEXIUM [Suspect]
     Indication: GASTROOESOPHAGEAL REFLUX DISEASE
     Route: 048
     Dates: start: 2001
  8. NEXIUM [Suspect]
     Indication: GASTROOESOPHAGEAL REFLUX DISEASE
     Route: 048
     Dates: start: 2001
  9. NEXIUM [Suspect]
     Indication: EROSIVE OESOPHAGITIS
     Route: 048
     Dates: start: 2001
  10. NEXIUM [Suspect]
     Indication: GASTROOESOPHAGEAL REFLUX DISEASE
     Route: 048
     Dates: start: 200207
  11. NEXIUM [Suspect]
     Indication: GASTROOESOPHAGEAL REFLUX DISEASE
     Route: 048
     Dates: start: 200207
  12. NEXIUM [Suspect]
     Indication: EROSIVE OESOPHAGITIS
     Route: 048
     Dates: start: 200207
  13. NEXIUM [Suspect]
     Indication: GASTROOESOPHAGEAL REFLUX DISEASE
     Route: 048
  14. NEXIUM [Suspect]
     Indication: GASTROOESOPHAGEAL REFLUX DISEASE
     Route: 048
  15. NEXIUM [Suspect]
     Indication: EROSIVE OESOPHAGITIS
     Route: 048
  16. VITAMINS [Concomitant]
  17. VITAMIN B [Concomitant]
     Dates: start: 1968
  18. VITAMIN D [Concomitant]
     Dosage: 2000
     Dates: start: 2011
  19. GLUCOSAMINE [Concomitant]
     Dates: start: 2000
  20. FISH OIL [Concomitant]
     Dates: start: 2010
  21. MAGNESIUM WITH CALCIUM [Concomitant]
     Dates: start: 201306

REACTIONS (21)
  - Intervertebral disc degeneration [Unknown]
  - Arrhythmia [Unknown]
  - Back pain [Unknown]
  - Carpal tunnel syndrome [Unknown]
  - Osteoporosis [Unknown]
  - Nodule [Unknown]
  - Vitamin D deficiency [Unknown]
  - Memory impairment [Unknown]
  - Amylase increased [Unknown]
  - Blood calcium decreased [Unknown]
  - Oral discomfort [Unknown]
  - Lip dry [Unknown]
  - Regurgitation [Unknown]
  - Dysphonia [Unknown]
  - Blood magnesium decreased [Unknown]
  - Headache [Unknown]
  - Arthralgia [Unknown]
  - Arthralgia [Unknown]
  - Off label use [Unknown]
  - Intentional product misuse [Unknown]
  - Intentional product misuse [Unknown]
